FAERS Safety Report 16694394 (Version 2)
Quarter: 2019Q3

REPORT INFORMATION
  Report Type: Spontaneous
  Country: NZ (occurrence: NZ)
  Receive Date: 20190812
  Receipt Date: 20190923
  Transmission Date: 20191004
  Serious: Yes (Death, Life-Threatening, Hospitalization, Other)
  Sender: FDA-Public Use
  Company Number: NZ-ELI_LILLY_AND_COMPANY-NZ201908003474

PATIENT
  Sex: Male

DRUGS (1)
  1. ZYPREXA RELPREVV [Suspect]
     Active Substance: OLANZAPINE PAMOATE
     Indication: PRODUCT USED FOR UNKNOWN INDICATION
     Dosage: UNK, UNKNOWN
     Route: 030
     Dates: start: 2017

REACTIONS (15)
  - Feeling abnormal [Unknown]
  - Dysarthria [Unknown]
  - Post-injection delirium sedation syndrome [Fatal]
  - Blood pressure decreased [Fatal]
  - Posture abnormal [Unknown]
  - Mobility decreased [Unknown]
  - Lethargy [Unknown]
  - Sydenham^s chorea [Fatal]
  - Confusional state [Unknown]
  - Respiratory arrest [Fatal]
  - Somnolence [Unknown]
  - Sedation [Unknown]
  - Agitation [Unknown]
  - Loss of consciousness [Fatal]
  - Irritability [Unknown]

NARRATIVE: CASE EVENT DATE: 2019
